FAERS Safety Report 19459796 (Version 1)
Quarter: 2021Q2

REPORT INFORMATION
  Report Type: Spontaneous
  Country: IT (occurrence: IT)
  Receive Date: 20210624
  Receipt Date: 20210624
  Transmission Date: 20210717
  Serious: Yes (Other)
  Sender: FDA-Public Use
  Company Number: NVSC2021IT139096

PATIENT
  Age: 34 Year
  Sex: Male

DRUGS (5)
  1. AUGMENTIN [Suspect]
     Active Substance: AMOXICILLIN\CLAVULANATE POTASSIUM
     Indication: INFECTION
     Dosage: 7 DF, TOTAL
     Route: 048
     Dates: start: 20210523, end: 20210523
  2. OKI [Suspect]
     Active Substance: KETOPROFEN LYSINE
     Indication: PAIN
     Dosage: 1 DF, TOTAL
     Route: 048
     Dates: start: 20210523, end: 20210523
  3. GLADIO [Suspect]
     Active Substance: ACECLOFENAC
     Indication: PAIN
     Dosage: 200 MG, TOTAL
     Route: 048
     Dates: start: 20210523, end: 20210523
  4. IBUPROFEN. [Suspect]
     Active Substance: IBUPROFEN
     Indication: PAIN
     Dosage: 800 MG, TOTAL
     Route: 048
     Dates: start: 20210423, end: 20210523
  5. NIMESULIDE [Suspect]
     Active Substance: NIMESULIDE
     Indication: PAIN
     Dosage: 200 MG, TOTAL
     Route: 048
     Dates: start: 20210523, end: 20210523

REACTIONS (3)
  - Headache [Recovering/Resolving]
  - Agitation [Recovering/Resolving]
  - Drug abuse [Recovering/Resolving]

NARRATIVE: CASE EVENT DATE: 20210523
